FAERS Safety Report 4726879-1 (Version None)
Quarter: 2005Q3

REPORT INFORMATION
  Report Type: 
  Country: None (occurrence: None)
  Receive Date: 20050727
  Receipt Date: 20050727
  Transmission Date: 20060218
  Serious: Yes (Hospitalization)
  Sender: FDA-Public Use
  Company Number: None

PATIENT
  Age: 60 Year
  Sex: Male
  Weight: 55.8 kg

DRUGS (11)
  1. CARBOPLATIN [Suspect]
     Indication: SMALL CELL LUNG CANCER STAGE UNSPECIFIED
     Dosage: 560MG IN, INTRAVEN
     Route: 042
  2. ETOPOSIDE [Suspect]
     Dosage: 130 MG, 130 MG I, IV
     Route: 042
     Dates: start: 20041123, end: 20041123
  3. SENNOSIDES [Concomitant]
  4. IRBESARTAN [Concomitant]
  5. PROCHLORPERAZINE MALEATE [Concomitant]
  6. OXYCODONE HCL [Concomitant]
  7. ALLOPURINOL [Concomitant]
  8. FLUTICASONE PROP [Concomitant]
  9. QUETIAPINE FUMARATE [Concomitant]
  10. MULTI-VITAMIN [Concomitant]
  11. OMEPRAZOLE [Concomitant]

REACTIONS (1)
  - FEBRILE NEUTROPENIA [None]
